FAERS Safety Report 5239695-1 (Version None)
Quarter: 2007Q1

REPORT INFORMATION
  Report Type: 
  Country: None (occurrence: None)
  Receive Date: 20070216
  Receipt Date: 20070205
  Transmission Date: 20070707
  Serious: Yes (Hospitalization)
  Sender: FDA-Public Use
  Company Number: US-ROCHE-481445

PATIENT
  Age: 50 Year
  Sex: Female

DRUGS (1)
  1. ROFERON-A [Suspect]
     Indication: HEPATITIS C
     Route: 065
     Dates: start: 20060515

REACTIONS (1)
  - THROMBOCYTOPENIA [None]
